FAERS Safety Report 12200066 (Version 3)
Quarter: 2016Q4

REPORT INFORMATION
  Report Type: Report from Study
  Country: CA (occurrence: CA)
  Receive Date: 20160322
  Receipt Date: 20161123
  Transmission Date: 20170207
  Serious: Yes (Other)
  Sender: FDA-Public Use
  Company Number: CA-INCYTE CORPORATION-2016IN001622

PATIENT
  Sex: Female

DRUGS (2)
  1. JAKAVI [Suspect]
     Active Substance: RUXOLITINIB
     Indication: POLYCYTHAEMIA VERA
     Dosage: 15 MG, BID
     Route: 048
     Dates: start: 201511
  2. JAKAVI [Suspect]
     Active Substance: RUXOLITINIB
     Dosage: 10 TO 15 MG BID
     Route: 048

REACTIONS (3)
  - Memory impairment [Unknown]
  - Fall [Unknown]
  - Loss of consciousness [Unknown]
